FAERS Safety Report 8720407 (Version 3)
Quarter: 2012Q4

REPORT INFORMATION
  Report Type: 
  Country: US (occurrence: US)
  Receive Date: 20120813
  Receipt Date: 20121031
  Transmission Date: 20130627
  Serious: Yes (Other)
  Sender: FDA-Public Use
  Company Number: US-ROCHE-1065001

PATIENT
  Sex: Female
  Weight: 68.1 kg

DRUGS (4)
  1. ACCUTANE [Suspect]
     Indication: ACNE
     Route: 065
     Dates: start: 1986
  2. ACCUTANE [Suspect]
     Route: 065
     Dates: start: 19870210, end: 19870805
  3. ACCUTANE [Suspect]
     Route: 065
     Dates: end: 1988
  4. LOESTRIN [Concomitant]

REACTIONS (3)
  - Inflammatory bowel disease [Unknown]
  - Colitis ulcerative [Unknown]
  - Stress [Unknown]
